FAERS Safety Report 16582372 (Version 3)
Quarter: 2019Q3

REPORT INFORMATION
  Report Type: Spontaneous
  Country: US (occurrence: US)
  Receive Date: 20190717
  Receipt Date: 20190916
  Transmission Date: 20191004
  Serious: No
  Sender: FDA-Public Use
  Company Number: US-BIOGEN-2019BI00763484

PATIENT
  Sex: Female

DRUGS (3)
  1. TECFIDERA [Suspect]
     Active Substance: DIMETHYL FUMARATE
     Indication: MULTIPLE SCLEROSIS
     Route: 065
     Dates: start: 20190701
  2. TECFIDERA [Suspect]
     Active Substance: DIMETHYL FUMARATE
     Route: 065
     Dates: start: 20130626, end: 20130724
  3. TYSABRI [Suspect]
     Active Substance: NATALIZUMAB
     Indication: MULTIPLE SCLEROSIS
     Route: 065
     Dates: start: 20160728, end: 20190601

REACTIONS (8)
  - Vein disorder [Not Recovered/Not Resolved]
  - Flushing [Recovered/Resolved with Sequelae]
  - Nephrolithiasis [Unknown]
  - Alopecia [Not Recovered/Not Resolved]
  - Multiple sclerosis [Not Recovered/Not Resolved]
  - Coeliac artery compression syndrome [Not Recovered/Not Resolved]
  - Contusion [Recovered/Resolved]
  - Post-traumatic stress disorder [Not Recovered/Not Resolved]
